FAERS Safety Report 20838461 (Version 1)
Quarter: 2022Q2

REPORT INFORMATION
  Report Type: Report from Study
  Country: US (occurrence: US)
  Receive Date: 20220517
  Receipt Date: 20220517
  Transmission Date: 20220721
  Serious: No
  Sender: FDA-Public Use
  Company Number: US-NOVARTISTESTPH-NVSC2022US113420

PATIENT
  Sex: Male

DRUGS (1)
  1. ENTRESTO [Suspect]
     Active Substance: SACUBITRIL\VALSARTAN
     Indication: Product used for unknown indication
     Dosage: UNK UNK, PRN (2 PILLS A DAY THEN SWITCHED TO 1 ONCE A DAY
     Route: 048
     Dates: start: 20220513

REACTIONS (2)
  - Nasal pruritus [Unknown]
  - Erythema [Unknown]
